FAERS Safety Report 6020792-8 (Version None)
Quarter: 2008Q4

REPORT INFORMATION
  Report Type: 
  Country: None (occurrence: None)
  Receive Date: 20081229
  Receipt Date: 20081219
  Transmission Date: 20090506
  Serious: Yes (Hospitalization, Other)
  Sender: FDA-Public Use
  Company Number: US-BAYER-200841248NA

PATIENT
  Age: 44 Year
  Sex: Female

DRUGS (2)
  1. MAGNEVIST [Suspect]
     Indication: NUCLEAR MAGNETIC RESONANCE IMAGING BRAIN
     Route: 042
     Dates: start: 20080901, end: 20080901
  2. ANTIBIOTICS [Concomitant]
     Route: 042

REACTIONS (18)
  - ANAPHYLACTOID REACTION [None]
  - CHEST PAIN [None]
  - CONVULSION [None]
  - DIZZINESS [None]
  - DYSGEUSIA [None]
  - EAR PAIN [None]
  - FATIGUE [None]
  - FEELING ABNORMAL [None]
  - FEELING HOT [None]
  - FLUSHING [None]
  - FOOD ALLERGY [None]
  - GASTROINTESTINAL HAEMORRHAGE [None]
  - NERVOUSNESS [None]
  - PAIN [None]
  - PALPITATIONS [None]
  - PHARYNGEAL OEDEMA [None]
  - POLLAKIURIA [None]
  - TREMOR [None]
